FAERS Safety Report 6814069-8 (Version None)
Quarter: 2010Q3

REPORT INFORMATION
  Report Type: 
  Country: None (occurrence: None)
  Receive Date: 20100702
  Receipt Date: 20100628
  Transmission Date: 20110219
  Serious: Yes (Death, Other)
  Sender: FDA-Public Use
  Company Number: PHHY2010US42377

PATIENT
  Sex: Male

DRUGS (9)
  1. TOBI [Suspect]
     Dosage: 300 MG, BID
  2. PANTOPRAZOLE [Concomitant]
     Dosage: 20 MG
  3. AMLODIPINE [Concomitant]
     Dosage: 2.5 MG
  4. PREDNISONE [Concomitant]
     Dosage: 1 MG
  5. DIOVAN [Concomitant]
     Dosage: 160 MG
  6. PRAVASTATIN [Concomitant]
     Dosage: 10 MG
  7. ACTONEL [Concomitant]
     Dosage: 30 MG
  8. ADVAIR DISKUS 100/50 [Concomitant]
     Dosage: 45/21
  9. SPIRIVA [Concomitant]

REACTIONS (2)
  - DEATH [None]
  - GENERAL PHYSICAL HEALTH DETERIORATION [None]
